FAERS Safety Report 8481499-0 (Version None)
Quarter: 2012Q3

REPORT INFORMATION
  Report Type: 
  Country: None (occurrence: None)
  Receive Date: 20120702
  Receipt Date: 20120619
  Transmission Date: 20120928
  Serious: Yes (Hospitalization)
  Sender: FDA-Public Use
  Company Number: JP-VERTEX PHARMACEUTICALS INC.-AE-2012-009256

PATIENT
  Age: 55 Year
  Sex: Male

DRUGS (8)
  1. TELAVIC (TELAPREVIR) [Suspect]
     Indication: HEPATITIS C
     Route: 048
     Dates: start: 20120316, end: 20120518
  2. RIBAVIRIN [Concomitant]
     Route: 048
     Dates: start: 20120406, end: 20120518
  3. PEGINTERFERON ALFA-2B [Concomitant]
     Indication: HEPATITIS C
     Route: 058
     Dates: start: 20120316
  4. RIBAVIRIN [Concomitant]
     Route: 048
     Dates: start: 20120524
  5. LEVOFLOXACIN [Concomitant]
     Route: 048
     Dates: start: 20120604, end: 20120609
  6. ACETAMINOPHEN [Concomitant]
     Route: 048
  7. RIBAVIRIN [Concomitant]
     Route: 048
  8. URSO 250 [Concomitant]
     Route: 048

REACTIONS (1)
  - PYREXIA [None]
